FAERS Safety Report 7521141-6 (Version None)
Quarter: 2011Q2

REPORT INFORMATION
  Report Type: 
  Country: None (occurrence: None)
  Receive Date: 20110603
  Receipt Date: 20101207
  Transmission Date: 20111010
  Serious: Yes (Hospitalization, Disabling, Other)
  Sender: FDA-Public Use
  Company Number: DE-BAYER-201015827GPV

PATIENT
  Age: 23 Year
  Sex: Female
  Weight: 60 kg

DRUGS (1)
  1. YASMIN [Suspect]
     Dosage: UNK
     Route: 048
     Dates: start: 20050901, end: 20060815

REACTIONS (21)
  - PULMONARY EMBOLISM [None]
  - NAUSEA [None]
  - BACK PAIN [None]
  - CHEST PAIN [None]
  - EXERCISE TOLERANCE DECREASED [None]
  - DECREASED APPETITE [None]
  - LUNG DISORDER [None]
  - DYSPNOEA EXERTIONAL [None]
  - TACHYCARDIA [None]
  - PULMONARY INFARCTION [None]
  - SYNCOPE [None]
  - HYPOAESTHESIA ORAL [None]
  - DYSPNOEA [None]
  - PULMONARY ARTERIAL HYPERTENSION [None]
  - COUGH [None]
  - PRODUCTIVE COUGH [None]
  - VAGINAL HAEMORRHAGE [None]
  - BODY TEMPERATURE INCREASED [None]
  - RIGHT VENTRICULAR FAILURE [None]
  - HEADACHE [None]
  - ABDOMINAL PAIN [None]
